FAERS Safety Report 24287546 (Version 1)
Quarter: 2024Q3

REPORT INFORMATION
  Report Type: Spontaneous
  Country: US (occurrence: US)
  Receive Date: 20240905
  Receipt Date: 20240905
  Transmission Date: 20241017
  Serious: No
  Sender: FRESENIUS KABI
  Company Number: US-FreseniusKabi-FK202413260

PATIENT
  Age: 92 Year
  Sex: Female
  Weight: 50.5 kg

DRUGS (2)
  1. HEPARIN SODIUM [Suspect]
     Active Substance: HEPARIN SODIUM
     Indication: Anticoagulant therapy
     Dosage: FORM OF ADMINISTRATION: INJECTION?RECEIVED HEPARIN SODIUM INJECTION, 4000 UNITS?ADDITIONAL 2000 UNIT
     Route: 042
     Dates: start: 20240828, end: 20240828
  2. HEPARIN SODIUM [Suspect]
     Active Substance: HEPARIN SODIUM
     Indication: Transcatheter aortic valve implantation

REACTIONS (1)
  - Therapeutic product effect decreased [Unknown]

NARRATIVE: CASE EVENT DATE: 20240828
